FAERS Safety Report 25145867 (Version 3)
Quarter: 2025Q2

REPORT INFORMATION
  Report Type: Report from Study
  Country: US (occurrence: US)
  Receive Date: 20250401
  Receipt Date: 20250421
  Transmission Date: 20250716
  Serious: Yes (Other)
  Sender: STALLERGENES
  Company Number: US-STALCOR-2025-AER-00921

PATIENT
  Age: 6 Year
  Sex: Male

DRUGS (2)
  1. PALFORZIA [Suspect]
     Active Substance: PEANUT
     Indication: Food allergy
     Dosage: IDE KIT (0.5-6MG), SAE OCCURRED AT INCREMENT DOSAGE OF 1.5MG- DISPENSED ON 12-MAR-2025
     Route: 048
     Dates: start: 20250325
  2. PALFORZIA [Suspect]
     Active Substance: PEANUT
     Dosage: 3X1MG: LVL1: MIX CONTENTS OF CAPSULES WELL WITH SEMISOLID FOOD AS DIRECTED AND CONSUME ONCE DAILY AT
     Route: 048

REACTIONS (7)
  - Respiratory tract oedema [Unknown]
  - Anaphylactic reaction [Unknown]
  - Dysphonia [Unknown]
  - Cough [Unknown]
  - Dyspnoea [Unknown]
  - Throat tightness [Unknown]
  - Pruritus [Unknown]

NARRATIVE: CASE EVENT DATE: 20250325
